FAERS Safety Report 7225585-1 (Version None)
Quarter: 2011Q1

REPORT INFORMATION
  Report Type: 
  Country: None (occurrence: None)
  Receive Date: 20110107
  Receipt Date: 20110107
  Transmission Date: 20110831
  Serious: Yes (Hospitalization)
  Sender: FDA-Public Use
  Company Number: None

PATIENT
  Age: 74 Year
  Sex: Male
  Weight: 68.2 kg

DRUGS (1)
  1. LITHIUM CARBONATE [Suspect]
     Dosage: PO
     Route: 048
     Dates: end: 20100707

REACTIONS (1)
  - CONFUSIONAL STATE [None]
